FAERS Safety Report 23716730 (Version 1)
Quarter: 2024Q2

REPORT INFORMATION
  Report Type: Spontaneous
  Country: JP (occurrence: JP)
  Receive Date: 20240408
  Receipt Date: 20240408
  Transmission Date: 20240716
  Serious: Yes (Death, Hospitalization, Other)
  Sender: FDA-Public Use
  Company Number: JP-TAKEDA-2024TJP002790

PATIENT
  Age: 66 Year
  Sex: Female

DRUGS (1)
  1. NINLARO [Suspect]
     Active Substance: IXAZOMIB CITRATE
     Indication: Product used for unknown indication
     Dosage: UNK
     Route: 048

REACTIONS (6)
  - Adverse reaction [Fatal]
  - Pyrexia [Unknown]
  - Blood pressure decreased [Unknown]
  - Dyslalia [Unknown]
  - Altered state of consciousness [Unknown]
  - Off label use [Unknown]
